FAERS Safety Report 7030303-6 (Version None)
Quarter: 2010Q4

REPORT INFORMATION
  Report Type: 
  Country: None (occurrence: None)
  Receive Date: 20101006
  Receipt Date: 20100923
  Transmission Date: 20110411
  Serious: Yes (Death)
  Sender: FDA-Public Use
  Company Number: US-ELI_LILLY_AND_COMPANY-US201007005739

PATIENT
  Age: 65 Year
  Sex: Female
  Weight: 74.376 kg

DRUGS (3)
  1. SYMBYAX [Suspect]
     Indication: SCHIZOPHRENIA, PARANOID TYPE
     Dosage: 1 D/F, DAILY (1/D)
     Dates: start: 20090105
  2. ASPIRIN [Concomitant]
  3. NORVASC [Concomitant]

REACTIONS (2)
  - MYOCARDIAL INFARCTION [None]
  - OFF LABEL USE [None]
